FAERS Safety Report 8651882 (Version 2)
Quarter: 2013Q3

REPORT INFORMATION
  Report Type: Spontaneous
  Country: ES (occurrence: ES)
  Receive Date: 20120706
  Receipt Date: 20130708
  Transmission Date: 20140515
  Serious: Yes (Hospitalization)
  Sender: FDA-Public Use
  Company Number: ES-JNJFOC-20120700800

PATIENT
  Sex: Male

DRUGS (2)
  1. STELARA [Suspect]
     Indication: PSORIASIS
     Route: 058
     Dates: start: 20120731
  2. STELARA [Suspect]
     Indication: PSORIASIS
     Route: 058
     Dates: end: 20120120

REACTIONS (4)
  - Cholangitis [Recovered/Resolved]
  - Liver abscess [Recovered/Resolved]
  - Bile duct stone [Recovered/Resolved]
  - Psoriasis [Recovered/Resolved]
